FAERS Safety Report 11646251 (Version 1)
Quarter: 2015Q4

REPORT INFORMATION
  Report Type: Spontaneous
  Country: US (occurrence: US)
  Receive Date: 20151020
  Receipt Date: 20151020
  Transmission Date: 20160304
  Serious: No
  Sender: FDA-Public Use
  Company Number: US-ROCHE-1609555

PATIENT
  Sex: Female

DRUGS (5)
  1. DIGOXIN. [Concomitant]
     Active Substance: DIGOXIN
     Dosage: FOR 5 YEARS
     Route: 065
  2. ESBRIET [Suspect]
     Active Substance: PIRFENIDONE
     Indication: IDIOPATHIC PULMONARY FIBROSIS
     Dosage: 3 PILLS, 265 MG APPROXIMATELY
     Route: 065
     Dates: start: 20150610
  3. HCTZ [Concomitant]
     Active Substance: HYDROCHLOROTHIAZIDE
  4. LOSARTAN. [Concomitant]
     Active Substance: LOSARTAN
     Indication: HYPERTENSION
     Dosage: FOR 6 MONTHS
     Route: 065
  5. OMEPRAZOLE. [Concomitant]
     Active Substance: OMEPRAZOLE
     Indication: BARRETT^S OESOPHAGUS
     Dosage: FOR 4 YEARS
     Route: 065

REACTIONS (1)
  - Nausea [Not Recovered/Not Resolved]
